FAERS Safety Report 17529369 (Version 1)
Quarter: 2020Q1

REPORT INFORMATION
  Report Type: Spontaneous
  Country: FR (occurrence: FR)
  Receive Date: 20200311
  Receipt Date: 20200311
  Transmission Date: 20200409
  Serious: Yes (Life-Threatening)
  Sender: FDA-Public Use
  Company Number: FR-MYLANLABS-2020M1026213

PATIENT
  Age: 55 Year
  Sex: Female

DRUGS (2)
  1. VERAPAMIL [Suspect]
     Active Substance: VERAPAMIL HYDROCHLORIDE
     Indication: TACHYCARDIA
     Dosage: 240 MILLIGRAM
     Route: 048
     Dates: start: 20200121, end: 20200121
  2. CARTEOL                            /00583802/ [Interacting]
     Active Substance: CARTEOLOL
     Indication: OPEN ANGLE GLAUCOMA
     Dosage: 1 GTT DROPS, QD
     Route: 047
     Dates: start: 201912

REACTIONS (2)
  - Drug interaction [Unknown]
  - Cardiogenic shock [Recovered/Resolved]

NARRATIVE: CASE EVENT DATE: 20200121
